FAERS Safety Report 5806237-9 (Version None)
Quarter: 2008Q3

REPORT INFORMATION
  Report Type: 
  Country: None (occurrence: None)
  Receive Date: 20080710
  Receipt Date: 20080701
  Transmission Date: 20090109
  Serious: Yes (Death)
  Sender: FDA-Public Use
  Company Number: CR-ROCHE-573823

PATIENT
  Sex: Female

DRUGS (2)
  1. XELODA [Suspect]
     Route: 065
     Dates: start: 20050602
  2. HERCEPTIN [Suspect]
     Route: 065
     Dates: start: 20050602

REACTIONS (1)
  - METASTASIS [None]
